FAERS Safety Report 19969661 (Version 4)
Quarter: 2022Q1

REPORT INFORMATION
  Report Type: Spontaneous
  Country: US (occurrence: US)
  Receive Date: 20211019
  Receipt Date: 20220206
  Transmission Date: 20220423
  Serious: No
  Sender: FDA-Public Use
  Company Number: US-NOVARTISTESTPH-NVSC2021US237189

PATIENT
  Sex: Male

DRUGS (1)
  1. BEOVU [Suspect]
     Active Substance: BROLUCIZUMAB-DBLL
     Indication: Neovascular age-related macular degeneration
     Dosage: 6 MG (MONTHLY FOR 3 INJECTIONS THEN EVERY 8-12 WEEKS) INTO THE EYES
     Route: 047

REACTIONS (2)
  - Eye inflammation [Unknown]
  - Visual impairment [Unknown]
